FAERS Safety Report 14502047 (Version 2)
Quarter: 2018Q1

REPORT INFORMATION
  Report Type: Report from Study
  Country: BR (occurrence: BR)
  Receive Date: 20180208
  Receipt Date: 20180213
  Transmission Date: 20180509
  Serious: Yes (Other)
  Sender: FDA-Public Use
  Company Number: BR-CIPLA (EU) LIMITED-2018BR04665

PATIENT

DRUGS (3)
  1. FLUTICASONE/SALMETEROL [Suspect]
     Active Substance: FLUTICASONE PROPIONATE\SALMETEROL XINAFOATE
     Indication: PRODUCT USED FOR UNKNOWN INDICATION
     Dosage: 25/250 MCG PER ACTUATION
     Dates: end: 20171215
  2. FOLIC ACID. [Concomitant]
     Active Substance: FOLIC ACID
     Indication: PRODUCT USED FOR UNKNOWN INDICATION
     Dosage: 5 MG, QD
     Route: 065
     Dates: start: 20171222
  3. BUSCOPAN COMPOSTO [Concomitant]
     Active Substance: BUTYLSCOPOLAMINE BROMIDE\METAMIZOLE SODIUM
     Indication: ABDOMINAL PAIN
     Dosage: 100 MG+250 MG, 6/6 HOURS
     Route: 048
     Dates: start: 20180115

REACTIONS (5)
  - Exposure during pregnancy [Unknown]
  - Headache [Unknown]
  - Nausea [Unknown]
  - Abortion spontaneous [Unknown]
  - Asthenia [Unknown]

NARRATIVE: CASE EVENT DATE: 20180116
